FAERS Safety Report 9397162 (Version 3)
Quarter: 2013Q4

REPORT INFORMATION
  Report Type: Report from Study
  Country: IL (occurrence: IL)
  Receive Date: 20130712
  Receipt Date: 20131216
  Transmission Date: 20140711
  Serious: Yes (Other)
  Sender: FDA-Public Use
  Company Number: PHHY2013IL073832

PATIENT
  Age: 69 Year
  Sex: Male

DRUGS (3)
  1. SANDOSTATIN LAR [Suspect]
     Indication: CARCINOID TUMOUR
     Dosage: 30 MG, 1Q4W
     Route: 030
     Dates: start: 20081207
  2. SANDOSTATIN LAR [Suspect]
     Dosage: 30 MG, 1Q4W
     Route: 030
     Dates: start: 20130709
  3. SANDOSTATIN LAR [Suspect]
     Dosage: 30 MG, 1Q4W
     Route: 030
     Dates: start: 20131126

REACTIONS (4)
  - Hepatic lesion [Unknown]
  - Malignant neoplasm progression [Unknown]
  - Metastases to liver [Unknown]
  - Blood test abnormal [Unknown]
